FAERS Safety Report 10055690 (Version 1)
Quarter: 2014Q2

REPORT INFORMATION
  Report Type: Spontaneous
  Country: US (occurrence: None)
  Receive Date: 20140402
  Receipt Date: 20140402
  Transmission Date: 20141212
  Serious: Yes (Other)
  Sender: FDA-Public Use
  Company Number: None

PATIENT
  Age: 36 Year
  Sex: Female
  Weight: 102.51 kg

DRUGS (2)
  1. AZITHROMYCIN [Suspect]
     Indication: SINUSITIS
     Dosage: 2 PILLS DAY 1, 1 PILL DAYS 2-5
     Route: 048
     Dates: start: 20140326, end: 20140330
  2. AZITHROMYCIN [Suspect]
     Indication: EAR INFECTION
     Dosage: 2 PILLS DAY 1, 1 PILL DAYS 2-5
     Route: 048
     Dates: start: 20140326, end: 20140330

REACTIONS (5)
  - Pyrexia [None]
  - Ear infection [None]
  - Sinusitis [None]
  - Condition aggravated [None]
  - Disease progression [None]
